FAERS Safety Report 6902970-6 (Version None)
Quarter: 2010Q3

REPORT INFORMATION
  Report Type: 
  Country: None (occurrence: None)
  Receive Date: 20100803
  Receipt Date: 20080815
  Transmission Date: 20110219
  Serious: No
  Sender: FDA-Public Use
  Company Number: US-PFIZER INC-2008055944

PATIENT
  Sex: Female
  Weight: 104.33 kg

DRUGS (12)
  1. LYRICA [Suspect]
     Indication: DIABETIC NEUROPATHY
     Route: 048
     Dates: start: 20080414, end: 20080623
  2. NSAID'S [Suspect]
  3. NOVOLOG [Concomitant]
  4. LANTUS [Concomitant]
  5. OMEGA-3 MARINE TRIGLYCERIDES [Concomitant]
  6. ATENOLOL [Concomitant]
  7. TORSEMIDE [Concomitant]
  8. ALTACE [Concomitant]
  9. PRAVASTATIN [Concomitant]
  10. ALLOPURINOL [Concomitant]
  11. SITAGLIPTIN [Concomitant]
  12. MONTELUKAST SODIUM [Concomitant]

REACTIONS (8)
  - ARTHRALGIA [None]
  - DRUG INEFFECTIVE [None]
  - IMPAIRED DRIVING ABILITY [None]
  - MALAISE [None]
  - PAIN IN EXTREMITY [None]
  - RENAL IMPAIRMENT [None]
  - SOMNOLENCE [None]
  - WEIGHT INCREASED [None]
